FAERS Safety Report 6199363-9 (Version None)
Quarter: 2009Q2

REPORT INFORMATION
  Report Type: 
  Country: None (occurrence: None)
  Receive Date: 20090520
  Receipt Date: 20090520
  Transmission Date: 20091009
  Serious: Yes (Other)
  Sender: FDA-Public Use
  Company Number: None

PATIENT
  Sex: Male
  Weight: 158.759 kg

DRUGS (1)
  1. SIMVASTATIN [Suspect]
     Dosage: 1 ONCE PER DAY PO
     Route: 048
     Dates: start: 20090501, end: 20090517

REACTIONS (1)
  - BACK PAIN [None]
